FAERS Safety Report 20491090 (Version 1)
Quarter: 2022Q1

REPORT INFORMATION
  Report Type: Report from Study
  Country: CA (occurrence: CA)
  Receive Date: 20220218
  Receipt Date: 20220218
  Transmission Date: 20220423
  Serious: Yes (Other)
  Sender: FDA-Public Use
  Company Number: CA-ABBVIE-22K-028-4282593-00

PATIENT
  Age: 74 Year
  Sex: Female

DRUGS (1)
  1. SKYRIZI [Suspect]
     Active Substance: RISANKIZUMAB-RZAA
     Indication: Psoriasis
     Route: 058
     Dates: start: 20201216

REACTIONS (4)
  - Knee operation [Unknown]
  - Psoriasis [Unknown]
  - Myalgia [Unknown]
  - Walking aid user [Unknown]

NARRATIVE: CASE EVENT DATE: 20211001
